FAERS Safety Report 7068078-7 (Version None)
Quarter: 2010Q4

REPORT INFORMATION
  Report Type: 
  Country: None (occurrence: None)
  Receive Date: 20101028
  Receipt Date: 20101019
  Transmission Date: 20110411
  Serious: No
  Sender: FDA-Public Use
  Company Number: AU-ASTRAZENECA-2010SE36226

PATIENT
  Age: 25 Year
  Sex: Male

DRUGS (4)
  1. SEROQUEL [Suspect]
     Indication: SCHIZOPHRENIA
     Route: 048
     Dates: end: 20101006
  2. SEROQUEL [Suspect]
     Indication: ATTENTION DEFICIT/HYPERACTIVITY DISORDER
     Route: 048
     Dates: end: 20101006
  3. DIAZEPAM [Concomitant]
     Indication: ANXIETY
     Dosage: 5-10 MG PRN
     Dates: start: 20100901
  4. DIAZEPAM [Concomitant]
     Indication: AGITATION
     Dosage: 5-10 MG PRN
     Dates: start: 20100901

REACTIONS (2)
  - DIASTOLIC DYSFUNCTION [None]
  - EJECTION FRACTION DECREASED [None]
